FAERS Safety Report 10830482 (Version 2)
Quarter: 2015Q1

REPORT INFORMATION
  Report Type: Spontaneous
  Country: US (occurrence: US)
  Receive Date: 20150219
  Receipt Date: 20150303
  Transmission Date: 20150721
  Serious: No
  Sender: FDA-Public Use
  Company Number: US-PFIZER INC-2015062399

PATIENT
  Age: 50 Year
  Sex: Female

DRUGS (2)
  1. LYRICA [Suspect]
     Active Substance: PREGABALIN
     Indication: ANXIETY
  2. LYRICA [Suspect]
     Active Substance: PREGABALIN
     Indication: PANIC DISORDER
     Dosage: 225 MG, 2X/DAY (75MG LYRICA THREE IN THE MORNING AND THREE IN THE AFTERNOON)
     Dates: start: 20150211

REACTIONS (1)
  - Drug ineffective for unapproved indication [Unknown]
